FAERS Safety Report 12326297 (Version 1)
Quarter: 2016Q2

REPORT INFORMATION
  Report Type: Spontaneous
  Country: US (occurrence: None)
  Receive Date: 20160502
  Receipt Date: 20160502
  Transmission Date: 20160815
  Serious: No
  Sender: FDA-Public Use
  Company Number: None

PATIENT
  Age: 36 Year
  Sex: Male
  Weight: 102.06 kg

DRUGS (1)
  1. CONTRAVE [Suspect]
     Active Substance: BUPROPION HYDROCHLORIDE\NALTREXONE HYDROCHLORIDE
     Indication: WEIGHT CONTROL
     Dosage: 2 TABLET(S) TWICE A DAY TAKEN BY MOUTH
     Route: 048

REACTIONS (5)
  - Pruritus generalised [None]
  - Pruritus [None]
  - Haemorrhage [None]
  - Drug ineffective [None]
  - Scratch [None]

NARRATIVE: CASE EVENT DATE: 20160429
